FAERS Safety Report 8449754-8 (Version None)
Quarter: 2012Q2

REPORT INFORMATION
  Report Type: 
  Country: None (occurrence: None)
  Receive Date: 20120613
  Receipt Date: 20120530
  Transmission Date: 20120825
  Serious: Yes (Hospitalization, Other)
  Sender: FDA-Public Use
  Company Number: US-2012-2270

PATIENT
  Age: 14 Year
  Sex: Female
  Weight: 55 kg

DRUGS (3)
  1. VINORELBINE [Suspect]
     Indication: RHABDOMYOSARCOMA
     Dosage: 25 MG/M2 IV
     Route: 042
     Dates: start: 20120201, end: 20120221
  2. CYCLOPHOSPHAMIDE [Suspect]
     Indication: RHABDOMYOSARCOMA
     Dosage: 1200 MG/M2 IV
     Route: 042
     Dates: start: 20120214, end: 20120214
  3. TEMSIROLIMUS [Suspect]
     Indication: RHABDOMYOSARCOMA
     Dosage: 15 MG/M2 IV
     Route: 042
     Dates: start: 20120214, end: 20120228

REACTIONS (13)
  - FEBRILE NEUTROPENIA [None]
  - ATELECTASIS [None]
  - HYPOTENSION [None]
  - PNEUMONIA [None]
  - HYPOXIA [None]
  - PLEURAL EFFUSION [None]
  - PNEUMONITIS [None]
  - TACHYCARDIA [None]
  - PULMONARY OEDEMA [None]
  - OXYGEN SATURATION DECREASED [None]
  - PERICARDIAL EFFUSION [None]
  - HYPOKALAEMIA [None]
  - JUGULAR VEIN THROMBOSIS [None]
